FAERS Safety Report 7406733-7 (Version None)
Quarter: 2011Q2

REPORT INFORMATION
  Report Type: 
  Country: None (occurrence: None)
  Receive Date: 20110401
  Receipt Date: 20110322
  Transmission Date: 20111010
  Serious: Yes (Other)
  Sender: FDA-Public Use
  Company Number: ACO_21935_2011

PATIENT
  Age: 49 Year
  Sex: Female

DRUGS (9)
  1. XANAX [Concomitant]
  2. LYRICA [Concomitant]
  3. SANCTURA XR (TROSPIUM CHLORIDE) [Concomitant]
  4. AMPYRA [Suspect]
     Indication: PRODUCT USED FOR UNKNOWN INDICATION
     Dosage: 10 MG, BID, ORAL
     Route: 048
     Dates: start: 20100429
  5. GILENYA [Suspect]
     Indication: PRODUCT USED FOR UNKNOWN INDICATION
     Dosage: 0.5 MG, QD
  6. SOLU-MEDROL [Suspect]
     Indication: MULTIPLE SCLEROSIS
     Dosage: 500 MG, EVERY 2 WEEKS, INTRAVENOUS
     Route: 042
  7. TIZANIDINE (TIZANIDINE) [Concomitant]
  8. KADIAN [Concomitant]
  9. PERCOCET [Concomitant]

REACTIONS (3)
  - WHITE BLOOD CELL COUNT DECREASED [None]
  - DRUG INTERACTION [None]
  - MUSCLE SPASMS [None]
